FAERS Safety Report 8298250-X (Version None)
Quarter: 2012Q2

REPORT INFORMATION
  Report Type: 
  Country: None (occurrence: None)
  Receive Date: 20120419
  Receipt Date: 20120210
  Transmission Date: 20120825
  Serious: Yes (Other)
  Sender: FDA-Public Use
  Company Number: US-BRISTOL-MYERS SQUIBB COMPANY-16397127

PATIENT

DRUGS (1)
  1. YERVOY [Suspect]

REACTIONS (3)
  - COLITIS [None]
  - HYPOPHYSITIS [None]
  - HEPATOTOXICITY [None]
